FAERS Safety Report 19997085 (Version 1)
Quarter: 2021Q4

REPORT INFORMATION
  Report Type: Spontaneous
  Country: US (occurrence: US)
  Receive Date: 20211026
  Receipt Date: 20211026
  Transmission Date: 20220303
  Serious: Yes (Other)
  Sender: FDA-Public Use
  Company Number: None

PATIENT
  Age: 32 Year
  Sex: Female
  Weight: 133.65 kg

DRUGS (1)
  1. REGEN-COV [Suspect]
     Active Substance: CASIRIVIMAB\IMDEVIMAB
     Indication: Suspected COVID-19
     Dates: start: 20211024, end: 20211024

REACTIONS (6)
  - Tremor [None]
  - Cough [None]
  - Headache [None]
  - Pyrexia [None]
  - Vomiting [None]
  - Hypersensitivity [None]

NARRATIVE: CASE EVENT DATE: 20211024
